FAERS Safety Report 9365236 (Version 1)
Quarter: 2013Q2

REPORT INFORMATION
  Report Type: Spontaneous
  Country: US (occurrence: US)
  Receive Date: 20130625
  Receipt Date: 20130625
  Transmission Date: 20140414
  Serious: No
  Sender: FDA-Public Use
  Company Number: US-B.I. PHARMACEUTICALS,INC./RIDGEFIELD-2013-BI-17426BP

PATIENT
  Age: 57 Year
  Sex: Male
  Weight: 91 kg

DRUGS (2)
  1. ZANTAC 150 (RANITIDINE HYDROCHLORIDE) [Suspect]
     Indication: DYSPEPSIA
     Dosage: 150 MG
     Route: 048
     Dates: start: 201305
  2. MYLANTA [Concomitant]
     Indication: DYSPEPSIA
     Dosage: STRENGTH: 2 TEASPOONS;
     Route: 048
     Dates: start: 201305

REACTIONS (2)
  - Incorrect drug administration duration [Not Recovered/Not Resolved]
  - Dyspepsia [Not Recovered/Not Resolved]
